FAERS Safety Report 4777403-9 (Version None)
Quarter: 2005Q3

REPORT INFORMATION
  Report Type: 
  Country: None (occurrence: None)
  Receive Date: 20050915
  Receipt Date: 20050906
  Transmission Date: 20060218
  Serious: Yes (Other)
  Sender: FDA-Public Use
  Company Number: 2005125385

PATIENT
  Sex: Male
  Weight: 104.3273 kg

DRUGS (3)
  1. AMLODIPINE [Suspect]
     Indication: HYPERTENSION
     Dosage: 10 MG (10 MG, QD INTERVAL:EVERY DAY)
  2. GLUCOPHAGE [Suspect]
     Indication: DIABETES MELLITUS
     Dosage: 500 MG
     Dates: start: 20000101
  3. LOPRESSOR [Concomitant]

REACTIONS (2)
  - MEDICATION TAMPERING [None]
  - PROSTATIC DISORDER [None]
